FAERS Safety Report 11271995 (Version 1)
Quarter: 2015Q3

REPORT INFORMATION
  Report Type: Spontaneous
  Country: US (occurrence: None)
  Receive Date: 20150713
  Receipt Date: 20150713
  Transmission Date: 20151125
  Serious: Yes (Disabling)
  Sender: FDA-Public Use
  Company Number: None

PATIENT
  Age: 60 Year
  Sex: Male
  Weight: 90.72 kg

DRUGS (10)
  1. VITAMIN D3 [Concomitant]
     Active Substance: CHOLECALCIFEROL
  2. PROZAC [Concomitant]
     Active Substance: FLUOXETINE HYDROCHLORIDE
  3. LIPITOR [Concomitant]
     Active Substance: ATORVASTATIN CALCIUM
  4. GENTODUETO [Concomitant]
  5. XANAX [Concomitant]
     Active Substance: ALPRAZOLAM
  6. REMERON [Concomitant]
     Active Substance: MIRTAZAPINE
  7. QUETIAPINE FUMARATE. [Suspect]
     Active Substance: QUETIAPINE FUMARATE
     Indication: DEPRESSION
     Route: 048
     Dates: start: 20140901, end: 20150712
  8. PHENOPIBRATE [Concomitant]
  9. VITAMIN B12 [Concomitant]
     Active Substance: CYANOCOBALAMIN
  10. MULTI-VITAMIN [Concomitant]
     Active Substance: .ALPHA.-TOCOPHEROL ACETATE, DL-\ASCORBIC ACID\CYANOCOBALAMIN\FLUORIDE ION\FOLIC ACID\NIACIN\PYRIDOXINE\RIBOFLAVIN\THIAMINE\VITAMIN A\VITAMIN D

REACTIONS (11)
  - Loss of consciousness [None]
  - Sudden onset of sleep [None]
  - Dysarthria [None]
  - Partner stress [None]
  - Impaired driving ability [None]
  - Fall [None]
  - Incorrect dose administered [None]
  - Hallucination [None]
  - Muscle disorder [None]
  - Loss of employment [None]
  - Amnesia [None]

NARRATIVE: CASE EVENT DATE: 20140701
